FAERS Safety Report 5352543-4 (Version None)
Quarter: 2007Q2

REPORT INFORMATION
  Report Type: 
  Country: None (occurrence: None)
  Receive Date: 20070611
  Receipt Date: 20070530
  Transmission Date: 20071010
  Serious: Yes (Hospitalization)
  Sender: FDA-Public Use
  Company Number: IT-ROCHE-499996

PATIENT
  Age: 39 Year
  Sex: Female

DRUGS (3)
  1. RIBAVIRIN [Suspect]
     Indication: HEPATITIS C
     Route: 065
  2. PEG-INTERFERON ALFA 2B [Suspect]
     Indication: HEPATITIS C
     Route: 065
  3. PEG-INTERFERON ALFA 2B [Suspect]
     Route: 065

REACTIONS (1)
  - CROHN'S DISEASE [None]
